FAERS Safety Report 18103766 (Version 1)
Quarter: 2020Q3

REPORT INFORMATION
  Report Type: Report from Study
  Country: US (occurrence: US)
  Receive Date: 20200803
  Receipt Date: 20200803
  Transmission Date: 20201103
  Serious: No
  Sender: FDA-Public Use
  Company Number: US-AGIOS-2007US02050

PATIENT

DRUGS (16)
  1. MULTIVITAMINUM [Concomitant]
     Active Substance: VITAMINS
     Route: 065
  2. LANOXIN [Concomitant]
     Active Substance: DIGOXIN
     Route: 065
  3. MELATONIN [Concomitant]
     Active Substance: MELATONIN
     Route: 065
  4. BENADRYL [Concomitant]
     Active Substance: DIPHENHYDRAMINE HYDROCHLORIDE
     Route: 065
  5. SYNTHROID [Concomitant]
     Active Substance: LEVOTHYROXINE SODIUM
     Route: 065
  6. PROBIOTICS NOS [Concomitant]
     Active Substance: PROBIOTICS NOS
     Route: 065
  7. LOPRESSOR [Concomitant]
     Active Substance: METOPROLOL TARTRATE
     Route: 065
  8. K?DUR [Concomitant]
     Active Substance: POTASSIUM CHLORIDE
     Route: 065
  9. WARFARIN SODIUM. [Concomitant]
     Active Substance: WARFARIN SODIUM
     Route: 065
  10. ARIMIDEX [Concomitant]
     Active Substance: ANASTROZOLE
     Route: 065
  11. TIBSOVO [Suspect]
     Active Substance: IVOSIDENIB
     Indication: HEPATIC CANCER
     Dosage: 500 MILLIGRAM, QD
     Route: 048
     Dates: start: 20200701
  12. ATACAND [Concomitant]
     Active Substance: CANDESARTAN CILEXETIL
     Route: 065
  13. GEMCITABINE. [Concomitant]
     Active Substance: GEMCITABINE
     Route: 065
  14. COMPAZINE                          /00013302/ [Concomitant]
     Active Substance: PROCHLORPERAZINE EDISYLATE
     Route: 065
  15. LASIX [Concomitant]
     Active Substance: FUROSEMIDE
     Route: 065
  16. SPIRONOLACTONE. [Concomitant]
     Active Substance: SPIRONOLACTONE
     Route: 065

REACTIONS (2)
  - Diarrhoea [Not Recovered/Not Resolved]
  - Off label use [Not Recovered/Not Resolved]

NARRATIVE: CASE EVENT DATE: 20200701
